FAERS Safety Report 17718273 (Version 2)
Quarter: 2020Q2

REPORT INFORMATION
  Report Type: Spontaneous
  Country: US (occurrence: US)
  Receive Date: 20200428
  Receipt Date: 20200514
  Transmission Date: 20200714
  Serious: Yes (Other)
  Sender: FDA-Public Use
  Company Number: US-PFIZER INC-2020168994

PATIENT
  Age: 44 Year
  Sex: Female
  Weight: 86 kg

DRUGS (9)
  1. DOXEPIN [Concomitant]
     Active Substance: DOXEPIN
     Dosage: 200 MG/^PM^
     Dates: start: 1995
  2. SYNTHROID [Concomitant]
     Active Substance: LEVOTHYROXINE SODIUM
     Dosage: 100 UG
     Dates: start: 2009
  3. TAXOTERE [Suspect]
     Active Substance: DOCETAXEL
     Indication: BREAST CANCER FEMALE
     Dosage: UNK UNK, EVERY 3 WEEKS
     Dates: start: 20090201, end: 20090501
  4. XANAX [Concomitant]
     Active Substance: ALPRAZOLAM
     Dosage: 2 MG
     Dates: start: 1995
  5. DOCETAXEL. [Suspect]
     Active Substance: DOCETAXEL
     Indication: BREAST CANCER FEMALE
     Dosage: UNK UNK, EVERY 3 WEEKS
  6. DURAGESIC [Concomitant]
     Active Substance: FENTANYL
     Dosage: 100 MG
     Dates: start: 1995, end: 1995
  7. CARISOPRODOL. [Concomitant]
     Active Substance: CARISOPRODOL
     Dosage: 350 MG
     Dates: start: 1995
  8. SOMA [Concomitant]
     Active Substance: CARISOPRODOL
     Dosage: UNK
  9. MS CONTIN [Concomitant]
     Active Substance: MORPHINE SULFATE
     Dosage: 60 MG
     Dates: start: 1995, end: 2011

REACTIONS (9)
  - Anxiety [Unknown]
  - Depression [Unknown]
  - Hair texture abnormal [Not Recovered/Not Resolved]
  - Hair colour changes [Not Recovered/Not Resolved]
  - Madarosis [Not Recovered/Not Resolved]
  - Panic attack [Unknown]
  - Nail disorder [Not Recovered/Not Resolved]
  - Alopecia [Not Recovered/Not Resolved]
  - Hair disorder [Not Recovered/Not Resolved]

NARRATIVE: CASE EVENT DATE: 2009
